FAERS Safety Report 19306466 (Version 2)
Quarter: 2021Q3

REPORT INFORMATION
  Report Type: Spontaneous
  Country: US (occurrence: US)
  Receive Date: 20210526
  Receipt Date: 20210706
  Transmission Date: 20211014
  Serious: No
  Sender: FDA-Public Use
  Company Number: US-ASTRAZENECA-2021A364553

PATIENT
  Sex: Female

DRUGS (3)
  1. NEBULIZER [Concomitant]
     Active Substance: DEVICE
     Dosage: 4 TIMES A DAY FOR 3 WEEKS.
  2. FASENRA [Suspect]
     Active Substance: BENRALIZUMAB
     Indication: CHRONIC OBSTRUCTIVE PULMONARY DISEASE
     Route: 058
     Dates: start: 20210302
  3. FASENRA [Suspect]
     Active Substance: BENRALIZUMAB
     Indication: ASTHMA
     Route: 058
     Dates: start: 20210302

REACTIONS (1)
  - Symptom recurrence [Unknown]
